FAERS Safety Report 14855350 (Version 1)
Quarter: 2018Q2

REPORT INFORMATION
  Report Type: Spontaneous
  Country: US (occurrence: US)
  Receive Date: 20180507
  Receipt Date: 20180507
  Transmission Date: 20180711
  Serious: No
  Sender: FDA-Public Use
  Company Number: US-ROCHE-1968995

PATIENT
  Sex: Male

DRUGS (9)
  1. DICLOFENAC SODIUM. [Concomitant]
     Active Substance: DICLOFENAC SODIUM
  2. ESBRIET [Suspect]
     Active Substance: PIRFENIDONE
     Indication: IDIOPATHIC PULMONARY FIBROSIS
     Route: 048
  3. METFORMIN HCL [Concomitant]
     Active Substance: METFORMIN HYDROCHLORIDE
  4. PIROXICAM. [Concomitant]
     Active Substance: PIROXICAM
  5. DEXILANT [Concomitant]
     Active Substance: DEXLANSOPRAZOLE
  6. FOLIC ACID. [Concomitant]
     Active Substance: FOLIC ACID
  7. PIOGLITAZONE HCL [Concomitant]
     Active Substance: PIOGLITAZONE
  8. ACETAMINOPHEN. [Concomitant]
     Active Substance: ACETAMINOPHEN
  9. METHOTREXATE. [Concomitant]
     Active Substance: METHOTREXATE

REACTIONS (1)
  - Dyspepsia [Not Recovered/Not Resolved]
